FAERS Safety Report 20095978 (Version 1)
Quarter: 2021Q4

REPORT INFORMATION
  Report Type: Spontaneous
  Country: US (occurrence: None)
  Receive Date: 20211119
  Receipt Date: 20211119
  Transmission Date: 20220303
  Serious: Yes (Death)
  Sender: FDA-Public Use
  Company Number: None

PATIENT
  Age: 69 Year
  Sex: Female

DRUGS (9)
  1. POMALYST [Suspect]
     Active Substance: POMALIDOMIDE
     Indication: Peripheral arterial occlusive disease
     Dosage: OTHER FREQUENCY : QDX21D/28D?
     Route: 048
     Dates: start: 20170328, end: 20170919
  2. POMALYST [Suspect]
     Active Substance: POMALIDOMIDE
     Indication: Plasma cell myeloma
  3. SENNA [Concomitant]
     Active Substance: SENNA LEAF\SENNOSIDES\SENNOSIDES A AND B
  4. DEXAMETHASONE [Concomitant]
     Active Substance: DEXAMETHASONE
  5. ACETAMINOPHEN\HYDROCODONE [Concomitant]
     Active Substance: ACETAMINOPHEN\HYDROCODONE
  6. FAMOTIDINE [Concomitant]
     Active Substance: FAMOTIDINE
  7. TEMAZEPAM [Concomitant]
     Active Substance: TEMAZEPAM
  8. LORAZEPAM [Concomitant]
     Active Substance: LORAZEPAM
  9. DEXTRAN SULFATE SODIUM [Concomitant]
     Active Substance: DEXTRAN SULFATE SODIUM

REACTIONS (6)
  - Disorientation [None]
  - Oxygen saturation decreased [None]
  - Dyspnoea [None]
  - Heart rate increased [None]
  - Confusional state [None]
  - Malignant ascites [None]

NARRATIVE: CASE EVENT DATE: 20170920
